FAERS Safety Report 15590912 (Version 1)
Quarter: 2018Q4

REPORT INFORMATION
  Report Type: Spontaneous
  Country: CA (occurrence: CA)
  Receive Date: 20181107
  Receipt Date: 20181107
  Transmission Date: 20190205
  Serious: Yes (Hospitalization, Other)
  Sender: FDA-Public Use
  Company Number: CA-TEVA-2018-CA-972682

PATIENT
  Age: 56 Year
  Sex: Male

DRUGS (7)
  1. VORICONAZOLE. [Suspect]
     Active Substance: VORICONAZOLE
     Indication: PNEUMONIA FUNGAL
     Dosage: 400 MILLIGRAM DAILY;
     Route: 048
  2. GLICLAZIDE [Interacting]
     Active Substance: GLICLAZIDE
     Indication: TYPE 2 DIABETES MELLITUS
     Dosage: 90 MILLIGRAM DAILY;
     Route: 048
  3. INSULIN GLARGINE [Concomitant]
     Active Substance: INSULIN GLARGINE
     Indication: TYPE 2 DIABETES MELLITUS
     Dosage: 18 UNITS AT NIGHT
     Route: 058
  4. FLUCONAZOLE. [Interacting]
     Active Substance: FLUCONAZOLE
     Indication: PNEUMONIA FUNGAL
     Dosage: 480 MILLIGRAM DAILY;
     Route: 048
  5. INSULIN LISPRO [Concomitant]
     Active Substance: INSULIN LISPRO
     Indication: TYPE 2 DIABETES MELLITUS
     Dosage: 6 UNITS WITH MEALS
     Route: 058
  6. PREDNISONE. [Concomitant]
     Active Substance: PREDNISONE
     Indication: MYELOFIBROSIS
     Dosage: 5 MILLIGRAM DAILY;
     Route: 048
  7. METFORMIN [Concomitant]
     Active Substance: METFORMIN HYDROCHLORIDE
     Indication: TYPE 2 DIABETES MELLITUS
     Dosage: IN DIVIDED DOSES
     Route: 048

REACTIONS (5)
  - Hypoglycaemia [Recovered/Resolved]
  - Toxicity to various agents [Recovered/Resolved]
  - Hallucination [Unknown]
  - Overdose [Recovered/Resolved]
  - Drug interaction [Recovered/Resolved]
